FAERS Safety Report 10094736 (Version 1)
Quarter: 2014Q2

REPORT INFORMATION
  Report Type: Spontaneous
  Country: US (occurrence: None)
  Receive Date: 20140421
  Receipt Date: 20140421
  Transmission Date: 20141212
  Serious: No
  Sender: FDA-Public Use
  Company Number: None

PATIENT
  Age: 74 Year
  Sex: Female
  Weight: 59.42 kg

DRUGS (2)
  1. IFOSFAMIDE [Suspect]
  2. PACLITAXEL [Suspect]

REACTIONS (2)
  - Neutropenia [None]
  - Hypophosphataemia [None]
